FAERS Safety Report 20668550 (Version 1)
Quarter: 2022Q2

REPORT INFORMATION
  Report Type: Spontaneous
  Country: IL (occurrence: None)
  Receive Date: 20220404
  Receipt Date: 20220404
  Transmission Date: 20220720
  Serious: Yes (Hospitalization)
  Sender: FDA-Public Use
  Company Number: 2022A131488

PATIENT
  Age: 60 Year
  Sex: Female

DRUGS (1)
  1. EVUSHELD [Suspect]
     Active Substance: CILGAVIMAB\TIXAGEVIMAB
     Route: 030
     Dates: start: 20220308

REACTIONS (3)
  - Chills [Recovering/Resolving]
  - Pyrexia [Recovering/Resolving]
  - Pelvic inflammatory disease [Unknown]

NARRATIVE: CASE EVENT DATE: 20220314
